FAERS Safety Report 24237238 (Version 1)
Quarter: 2024Q3

REPORT INFORMATION
  Report Type: Spontaneous
  Country: CA (occurrence: CA)
  Receive Date: 20240822
  Receipt Date: 20240822
  Transmission Date: 20241017
  Serious: Yes (Other)
  Sender: BAXTER
  Company Number: CA-BAXTER-2024BAX023159

PATIENT
  Age: 5 Year
  Sex: Female

DRUGS (13)
  1. CYCLOPHOSPHAMIDE [Suspect]
     Active Substance: CYCLOPHOSPHAMIDE
     Indication: Prophylaxis against graft versus host disease
     Dosage: UNK, DOSAGE FORM: NOT SPECIFIED
     Route: 065
  2. ECULIZUMAB [Suspect]
     Active Substance: ECULIZUMAB
     Indication: Product used for unknown indication
     Dosage: UNK
     Route: 065
  3. FLUDARABINE [Suspect]
     Active Substance: FLUDARABINE PHOSPHATE
     Indication: Still^s disease
     Dosage: 180.0 MG/M2
     Route: 065
  4. FLUDARABINE [Suspect]
     Active Substance: FLUDARABINE PHOSPHATE
     Indication: Bone marrow conditioning regimen
  5. FLUDARABINE [Suspect]
     Active Substance: FLUDARABINE PHOSPHATE
     Indication: Allogenic stem cell transplantation
  6. MYCOPHENOLATE MOFETIL [Suspect]
     Active Substance: MYCOPHENOLATE MOFETIL
     Indication: Prophylaxis against graft versus host disease
     Dosage: UNK, DOSAGE FORM: NOT SPECIFIED
     Route: 065
  7. RUXOLITINIB [Suspect]
     Active Substance: RUXOLITINIB
     Indication: Product used for unknown indication
     Dosage: UNK
     Route: 065
  8. ALEMTUZUMAB [Suspect]
     Active Substance: ALEMTUZUMAB
     Indication: Still^s disease
     Dosage: 5.0 MG/KG, DOSAGE FORM: SOLUTION INTRAVENOUS
     Route: 065
  9. ALEMTUZUMAB [Suspect]
     Active Substance: ALEMTUZUMAB
     Indication: Bone marrow conditioning regimen
  10. ALEMTUZUMAB [Suspect]
     Active Substance: ALEMTUZUMAB
     Indication: Allogenic stem cell transplantation
  11. BUSULFAN [Suspect]
     Active Substance: BUSULFAN
     Indication: Still^s disease
     Dosage: UNK, DOSAGE FORM: NOT SPECIFIED
     Route: 065
  12. BUSULFAN [Suspect]
     Active Substance: BUSULFAN
     Indication: Bone marrow conditioning regimen
     Dosage: UNK, DOSAGE FORM: INJECTION
     Route: 065
  13. BUSULFAN [Suspect]
     Active Substance: BUSULFAN
     Indication: Allogenic stem cell transplantation

REACTIONS (12)
  - Product use in unapproved indication [Recovered/Resolved]
  - Acute kidney injury [Recovered/Resolved]
  - Bronchiolitis obliterans syndrome [Recovered/Resolved]
  - Posterior reversible encephalopathy syndrome [Recovered/Resolved]
  - Thrombotic microangiopathy [Recovered/Resolved]
  - Hepatitis [Recovered/Resolved]
  - Herpes simplex [Recovered/Resolved]
  - Hypertension [Recovered/Resolved]
  - Mucosal inflammation [Recovered/Resolved]
  - Organising pneumonia [Recovered/Resolved]
  - Staphylococcal infection [Recovered/Resolved]
  - Urinary tract infection bacterial [Recovered/Resolved]
